FAERS Safety Report 14347385 (Version 1)
Quarter: 2018Q1

REPORT INFORMATION
  Report Type: Spontaneous
  Country: US (occurrence: US)
  Receive Date: 20180102
  Receipt Date: 20180102
  Transmission Date: 20180509
  Serious: Yes (Other)
  Sender: FDA-Public Use
  Company Number: None

PATIENT
  Sex: Female

DRUGS (6)
  1. CLONAZEPAM. [Concomitant]
     Active Substance: CLONAZEPAM
  2. GARDEN OF LIFE PROBIOTICS [Concomitant]
  3. SERTRALINE HCL [Suspect]
     Active Substance: SERTRALINE HYDROCHLORIDE
     Indication: ANXIETY
     Dosage: QUANTITY:180 TABLET(S);OTHER FREQUENCY:2 EVERY MORNING;?
     Route: 048
     Dates: start: 20171207, end: 20180102
  4. SERTRALINE HCL [Suspect]
     Active Substance: SERTRALINE HYDROCHLORIDE
     Indication: OBSESSIVE-COMPULSIVE DISORDER
     Dosage: QUANTITY:180 TABLET(S);OTHER FREQUENCY:2 EVERY MORNING;?
     Route: 048
     Dates: start: 20171207, end: 20180102
  5. DEXTROAMPHET SACCHARAT, AMPHET ASPARTATE, DEXTROAMPHET SULFATE AND AMPHET SULFAT [Concomitant]
     Active Substance: AMPHETAMINE ASPARTATE\AMPHETAMINE SULFATE\DEXTROAMPHETAMINE SACCHARATE\DEXTROAMPHETAMINE SULFATE
  6. SERTRALINE HCL [Suspect]
     Active Substance: SERTRALINE HYDROCHLORIDE
     Indication: POST-TRAUMATIC STRESS DISORDER
     Dosage: QUANTITY:180 TABLET(S);OTHER FREQUENCY:2 EVERY MORNING;?
     Route: 048
     Dates: start: 20171207, end: 20180102

REACTIONS (11)
  - Anxiety [None]
  - Decreased appetite [None]
  - Mental impairment [None]
  - Mania [None]
  - Insomnia [None]
  - Depression [None]
  - Agoraphobia [None]
  - Speech disorder [None]
  - Crying [None]
  - Suicidal behaviour [None]
  - Tremor [None]

NARRATIVE: CASE EVENT DATE: 20171215
